FAERS Safety Report 24120936 (Version 1)
Quarter: 2024Q3

REPORT INFORMATION
  Report Type: Spontaneous
  Country: SE (occurrence: SE)
  Receive Date: 20240722
  Receipt Date: 20240722
  Transmission Date: 20241017
  Serious: Yes (Other)
  Sender: GALDERMA
  Company Number: None

PATIENT

DRUGS (1)
  1. SOOLANTRA [Suspect]
     Active Substance: IVERMECTIN
     Indication: Rosacea
     Dosage: 10 MILLIGRAM PER GRAM, A PEA SIZE AMOUNT OF CREAM APPLIED ONCE DAILY TO EACH OF THE FIVE AREAS OF FA
     Route: 003
     Dates: start: 20240607, end: 20240607

REACTIONS (5)
  - Haematochezia [Recovering/Resolving]
  - Dyspnoea [Recovering/Resolving]
  - Haematuria [Recovering/Resolving]
  - Pruritus [Unknown]
  - Swelling face [Unknown]

NARRATIVE: CASE EVENT DATE: 20240601
